FAERS Safety Report 9882952 (Version 2)
Quarter: 2014Q2

REPORT INFORMATION
  Report Type: Report from Study
  Country: DE (occurrence: DE)
  Receive Date: 20140208
  Receipt Date: 20140510
  Transmission Date: 20141212
  Serious: Yes (Life-Threatening)
  Sender: FDA-Public Use
  Company Number: DE-ROCHE-1340722

PATIENT
  Age: 70 Year
  Sex: Male

DRUGS (3)
  1. RITUXIMAB [Suspect]
     Indication: RHEUMATOID ARTHRITIS
     Dosage: LAST DOSE PRIOR TO SAE WAS ON 21/NOV/2012
     Route: 065
     Dates: start: 20070516
  2. METHOTREXATE [Suspect]
     Indication: RHEUMATOID ARTHRITIS
     Dosage: DIFFERENT DOSAGES: FROM 10 TO 25 MG
     Route: 065
     Dates: start: 200602
  3. METHOTREXATE [Suspect]
     Route: 051
     Dates: start: 200904, end: 201305

REACTIONS (2)
  - Prostate cancer [Unknown]
  - Post procedural haemorrhage [Unknown]
